FAERS Safety Report 20794725 (Version 2)
Quarter: 2022Q3

REPORT INFORMATION
  Report Type: Spontaneous
  Country: US (occurrence: US)
  Receive Date: 20220506
  Receipt Date: 20220713
  Transmission Date: 20221027
  Serious: Yes (Other)
  Sender: FDA-Public Use
  Company Number: US-PROCTER_AND_GAMBLE-GS22039260

PATIENT
  Sex: Female

DRUGS (8)
  1. CREST 3D WHITE BRILLIANCE CHARCOAL [Suspect]
     Active Substance: SODIUM FLUORIDE
     Indication: Dental disorder prophylaxis
     Dosage: ENOUGH TO COVER THE TOOTHBRUSH TWICE A DAY
     Route: 002
     Dates: end: 20220425
  2. CREST 3D WHITE BRILLIANCE CHARCOAL [Suspect]
     Active Substance: SODIUM FLUORIDE
     Indication: Dental disorder prophylaxis
  3. DEVICE [Suspect]
     Active Substance: DEVICE
     Indication: Dental disorder prophylaxis
     Route: 002
  4. DEVICE [Suspect]
     Active Substance: DEVICE
     Indication: Dental disorder prophylaxis
  5. DEVICE [Suspect]
     Active Substance: DEVICE
     Indication: Dental disorder prophylaxis
     Route: 002
  6. DEVICE [Suspect]
     Active Substance: DEVICE
     Indication: Dental disorder prophylaxis
  7. WELLBUTRIN [Concomitant]
     Active Substance: BUPROPION HYDROCHLORIDE
  8. medication (illegible) [Concomitant]

REACTIONS (4)
  - Tooth fracture [Recovered/Resolved]
  - Tooth disorder [Recovered/Resolved]
  - Mouth swelling [Recovered/Resolved]
  - Oral pain [Recovered/Resolved]

NARRATIVE: CASE EVENT DATE: 20050101
